FAERS Safety Report 24458196 (Version 1)
Quarter: 2024Q4

REPORT INFORMATION
  Report Type: Spontaneous
  Country: US (occurrence: US)
  Receive Date: 20241018
  Receipt Date: 20241018
  Transmission Date: 20250114
  Serious: Yes (Hospitalization)
  Sender: HETERO
  Company Number: US-HETERO-HET2024US03649

PATIENT
  Age: 71 Year
  Sex: Female

DRUGS (10)
  1. HYDRALAZINE [Suspect]
     Active Substance: HYDRALAZINE HYDROCHLORIDE
     Indication: Angioedema
     Dosage: UNK
     Route: 065
  2. HYDRALAZINE [Suspect]
     Active Substance: HYDRALAZINE HYDROCHLORIDE
     Indication: Hypertension
  3. FAMOTIDINE [Concomitant]
     Active Substance: FAMOTIDINE
     Indication: Angioedema
     Dosage: UNK
     Route: 065
  4. FAMOTIDINE [Concomitant]
     Active Substance: FAMOTIDINE
     Indication: Hypertension
  5. METHYLPREDNISOLONE [Concomitant]
     Active Substance: METHYLPREDNISOLONE
     Indication: Angioedema
     Dosage: UNK
     Route: 065
  6. METHYLPREDNISOLONE [Concomitant]
     Active Substance: METHYLPREDNISOLONE
     Indication: Hypertension
  7. DIPHENHYDRAMINE [Concomitant]
     Active Substance: DIPHENHYDRAMINE
     Indication: Angioedema
     Dosage: UNK
     Route: 065
  8. DIPHENHYDRAMINE [Concomitant]
     Active Substance: DIPHENHYDRAMINE
     Indication: Hypertension
  9. EPINEPHRINE [Concomitant]
     Active Substance: EPINEPHRINE
     Indication: Angioedema
     Dosage: UNK
     Route: 065
  10. EPINEPHRINE [Concomitant]
     Active Substance: EPINEPHRINE
     Indication: Hypertension

REACTIONS (1)
  - Anti-neutrophil cytoplasmic antibody positive vasculitis [Recovered/Resolved]
